FAERS Safety Report 4359361-4 (Version None)
Quarter: 2004Q2

REPORT INFORMATION
  Report Type: 
  Country: None (occurrence: None)
  Receive Date: 20040512
  Receipt Date: 20040428
  Transmission Date: 20050107
  Serious: Yes (Hospitalization)
  Sender: FDA-Public Use
  Company Number: ATO-04-0311

PATIENT
  Age: 49 Year
  Sex: Female
  Weight: 46 kg

DRUGS (3)
  1. TRISENOX [Suspect]
     Indication: METASTATIC MALIGNANT MELANOMA
     Dosage: 12 MG (0.25 MG/KG, 5X/WK THEN 2X/WK), IVI
     Route: 042
     Dates: start: 20040223, end: 20040322
  2. ASCORBIC ACID [Suspect]
     Indication: METASTATIC MALIGNANT MELANOMA
     Dosage: 1000 MG (1000 MG, 5X/WK THEN 2X/WK), INTRAVENOUS
     Route: 042
     Dates: start: 20040223, end: 20040322
  3. TEMOZOLOMIDE [Suspect]
     Indication: METASTATIC MALIGNANT MELANOMA
     Dosage: ORAL
     Route: 048
     Dates: start: 20040223, end: 20040322

REACTIONS (3)
  - DISEASE PROGRESSION [None]
  - GRAND MAL CONVULSION [None]
  - NERVOUS SYSTEM DISORDER [None]
